FAERS Safety Report 17398080 (Version 2)
Quarter: 2020Q1

REPORT INFORMATION
  Report Type: Spontaneous
  Country: US (occurrence: US)
  Receive Date: 20200210
  Receipt Date: 20200304
  Transmission Date: 20200409
  Serious: Yes (Life-Threatening, Hospitalization, Other)
  Sender: FDA-Public Use
  Company Number: US-AMGEN-USASP2020019332

PATIENT
  Age: 68 Year
  Sex: Female
  Weight: 100.4 kg

DRUGS (7)
  1. KYPROLIS [Suspect]
     Active Substance: CARFILZOMIB
     Dosage: 70 MILLIGRAM/SQ. METER
     Route: 042
     Dates: start: 20190808, end: 2019
  2. KYPROLIS [Suspect]
     Active Substance: CARFILZOMIB
     Dosage: 80 MILLIGRAM
     Route: 042
     Dates: start: 20191020, end: 2019
  3. KYPROLIS [Suspect]
     Active Substance: CARFILZOMIB
     Indication: PLASMA CELL MYELOMA
     Dosage: 20 MILLIGRAM/SQ. METER, QWK
     Route: 042
     Dates: start: 20190730, end: 2019
  4. KYPROLIS [Suspect]
     Active Substance: CARFILZOMIB
     Dosage: 100 MILLIGRAM
     Route: 042
     Dates: start: 20191101, end: 2019
  5. KYPROLIS [Suspect]
     Active Substance: CARFILZOMIB
     Dosage: 120 MILLIGRAM
     Route: 042
     Dates: start: 20191203
  6. KYPROLIS [Suspect]
     Active Substance: CARFILZOMIB
     Dosage: 54 MILLIGRAM/SQ. METER
     Route: 042
     Dates: start: 201909, end: 2019
  7. DEXAMETHASONE. [Concomitant]
     Active Substance: DEXAMETHASONE
     Indication: PLASMA CELL MYELOMA
     Dosage: 40 MILLIGRAM, QWK
     Route: 048
     Dates: start: 20190730

REACTIONS (16)
  - Pneumonia proteus [Recovered/Resolved]
  - Off label use [Unknown]
  - Bundle branch block right [Unknown]
  - Fluid overload [Unknown]
  - Metabolic acidosis [Unknown]
  - Septic shock [Unknown]
  - Pneumonia [Unknown]
  - Acute kidney injury [Unknown]
  - Sepsis [Unknown]
  - Encephalopathy [Unknown]
  - Hyperkalaemia [Recovered/Resolved]
  - Metabolic encephalopathy [Unknown]
  - Upper respiratory tract infection [Unknown]
  - Chronic obstructive pulmonary disease [Unknown]
  - Respiratory failure [Unknown]
  - Oedema [Unknown]

NARRATIVE: CASE EVENT DATE: 2019
